FAERS Safety Report 14783303 (Version 4)
Quarter: 2018Q2

REPORT INFORMATION
  Report Type: Report from Study
  Country: US (occurrence: US)
  Receive Date: 20180420
  Receipt Date: 20180621
  Transmission Date: 20180711
  Serious: Yes (Death, Hospitalization, Other)
  Sender: FDA-Public Use
  Company Number: US-GILEAD-2018-0334430

PATIENT
  Age: 70 Year
  Sex: Male
  Weight: 84.35 kg

DRUGS (32)
  1. ALBUMIN HUMAN [Concomitant]
     Active Substance: ALBUMIN HUMAN
  2. BISACODYL. [Concomitant]
     Active Substance: BISACODYL
  3. CLONIDINE HCL [Concomitant]
     Active Substance: CLONIDINE HYDROCHLORIDE
  4. DILTIAZEM. [Concomitant]
     Active Substance: DILTIAZEM
  5. MILRINONE [Concomitant]
     Active Substance: MILRINONE
  6. METOLAZONE. [Concomitant]
     Active Substance: METOLAZONE
  7. AMBRISENTAN [Suspect]
     Active Substance: AMBRISENTAN
     Indication: RIGHT VENTRICULAR FAILURE
  8. POTASSIUM PHOSPHATE                /00493501/ [Concomitant]
     Active Substance: POTASSIUM PHOSPHATE, DIBASIC
  9. UPTRAVI [Concomitant]
     Active Substance: SELEXIPAG
  10. DIPHENHYDRAMINE HCL [Concomitant]
     Active Substance: DIPHENHYDRAMINE HYDROCHLORIDE
  11. IPRATROPIUM BROMIDE. [Concomitant]
     Active Substance: IPRATROPIUM BROMIDE
  12. ZOLPIDEM TARTRATE. [Concomitant]
     Active Substance: ZOLPIDEM TARTRATE
  13. AMBRISENTAN [Suspect]
     Active Substance: AMBRISENTAN
     Indication: PULMONARY ARTERIAL HYPERTENSION
     Dosage: 10 MG, QD
     Route: 065
  14. CEFAZOLIN SODIUM. [Concomitant]
     Active Substance: CEFAZOLIN SODIUM
  15. FLOLAN [Concomitant]
     Active Substance: EPOPROSTENOL SODIUM
  16. HEPARIN SODIUM. [Concomitant]
     Active Substance: HEPARIN SODIUM
  17. HYDROCODONE BITARTRATE AND ACETAMINOPHEN [Concomitant]
     Active Substance: ACETAMINOPHEN\HYDROCODONE BITARTRATE
  18. LIDOCAINE. [Concomitant]
     Active Substance: LIDOCAINE
  19. ONDANSETRON [Concomitant]
     Active Substance: ONDANSETRON
  20. PREDNISONE. [Concomitant]
     Active Substance: PREDNISONE
  21. ADCIRCA [Concomitant]
     Active Substance: TADALAFIL
  22. ALBUTEROL W/IPRATROPIUM [Concomitant]
     Active Substance: ALBUTEROL\IPRATROPIUM
  23. LEVALBUTEROL HCL [Concomitant]
     Active Substance: LEVALBUTEROL HYDROCHLORIDE
  24. OXYGEN. [Concomitant]
     Active Substance: OXYGEN
  25. EPOPROSTENOL SODIUM. [Concomitant]
     Active Substance: EPOPROSTENOL SODIUM
  26. LIPITOR [Concomitant]
     Active Substance: ATORVASTATIN CALCIUM
  27. TORSEMIDE. [Concomitant]
     Active Substance: TORSEMIDE
  28. FUROSEMIDE. [Concomitant]
     Active Substance: FUROSEMIDE
  29. POTASSIUM CHLORIDE. [Concomitant]
     Active Substance: POTASSIUM CHLORIDE
  30. SODIUM CHLORIDE. [Concomitant]
     Active Substance: SODIUM CHLORIDE
  31. DIGOXIN. [Concomitant]
     Active Substance: DIGOXIN
  32. EPLERENONE. [Concomitant]
     Active Substance: EPLERENONE

REACTIONS (8)
  - Cardiac failure [Unknown]
  - Pleural effusion [Unknown]
  - Oedema peripheral [Unknown]
  - Respiratory failure [Unknown]
  - Thrombocytopenia [Unknown]
  - Generalised oedema [Unknown]
  - Cardiac failure chronic [Unknown]
  - Pulmonary hypertension [Fatal]

NARRATIVE: CASE EVENT DATE: 20180402
